FAERS Safety Report 8535677-2 (Version None)
Quarter: 2012Q3

REPORT INFORMATION
  Report Type: 
  Country: None (occurrence: None)
  Receive Date: 20120725
  Receipt Date: 20120712
  Transmission Date: 20120928
  Serious: Yes (Other)
  Sender: FDA-Public Use
  Company Number: DE-UCBSA-061717

PATIENT
  Age: 27 Year
  Sex: Male

DRUGS (2)
  1. VIMPAT [Suspect]
     Indication: GRAND MAL CONVULSION
     Route: 048
     Dates: start: 20120706, end: 20120707
  2. OXCARBAZEPINE [Concomitant]
     Indication: GRAND MAL CONVULSION
     Dosage: LONG TERM THERAPY

REACTIONS (6)
  - RASH [None]
  - ANGIOEDEMA [None]
  - DRUG ERUPTION [None]
  - PRURITUS [None]
  - SALIVARY GLAND ENLARGEMENT [None]
  - DRY MOUTH [None]
